FAERS Safety Report 4452017-9 (Version None)
Quarter: 2004Q3

REPORT INFORMATION
  Report Type: 
  Country: None (occurrence: None)
  Receive Date: 20040915
  Receipt Date: 20040915
  Transmission Date: 20050211
  Serious: Yes (Hospitalization)
  Sender: FDA-Public Use
  Company Number: None

PATIENT
  Age: 70 Year
  Sex: Female

DRUGS (13)
  1. DIGOXIN [Suspect]
     Indication: CARDIAC FAILURE CONGESTIVE
     Dosage: 0.25 MG DAILY CHRONIC
  2. ATENOLOL [Concomitant]
  3. DARVOCET [Concomitant]
  4. INSULIN [Concomitant]
  5. LIPITOR [Concomitant]
  6. LASIX [Concomitant]
  7. GLUCOPHAGE [Concomitant]
  8. ISOSORBIDE [Concomitant]
  9. COMBIVENT [Concomitant]
  10. FLOVENT [Concomitant]
  11. PEPCID [Concomitant]
  12. PLAVIX [Concomitant]
  13. ASPIRIN [Concomitant]

REACTIONS (4)
  - ARRHYTHMIA [None]
  - FALL [None]
  - ISCHAEMIA [None]
  - SYNCOPE [None]
